FAERS Safety Report 5006140-0 (Version None)
Quarter: 2006Q1

REPORT INFORMATION
  Report Type: 
  Country: None (occurrence: None)
  Receive Date: 20060328
  Receipt Date: 20060116
  Transmission Date: 20060701
  Serious: No
  Sender: FDA-Public Use
  Company Number: 06P-163-0322320-00

PATIENT
  Age: 67 Year
  Sex: Female
  Weight: 99.1 kg

DRUGS (8)
  1. HUMIRA [Suspect]
     Indication: RHEUMATOID ARTHRITIS
     Dosage: 40 MG, 1 IN 2 WK, SUBCUTANEOUS
     Route: 058
     Dates: start: 20040801, end: 20050901
  2. CLOPIDOGREL BISULFATE [Concomitant]
  3. ATORVASTATIN CALCIUM [Concomitant]
  4. METHADONE [Concomitant]
  5. VALSARTAN [Concomitant]
  6. LANSOPRAZOLE [Concomitant]
  7. LEVOTHYROXINE SODIUM [Concomitant]
  8. SETRALINE HCL [Concomitant]

REACTIONS (1)
  - LOCALISED INFECTION [None]
